FAERS Safety Report 7969606-7 (Version None)
Quarter: 2011Q4

REPORT INFORMATION
  Report Type: 
  Country: None (occurrence: None)
  Receive Date: 20111212
  Receipt Date: 20111206
  Transmission Date: 20120403
  Serious: Yes (Hospitalization, Other)
  Sender: FDA-Public Use
  Company Number: US-PFIZER INC-2011283299

PATIENT
  Sex: Female
  Weight: 51.701 kg

DRUGS (1)
  1. LYRICA [Suspect]
     Indication: TRIGEMINAL NEURALGIA
     Dosage: 50 MG, 1X/DAY
     Route: 048
     Dates: start: 20110805, end: 20110805

REACTIONS (10)
  - MALAISE [None]
  - WEIGHT DECREASED [None]
  - ABDOMINAL PAIN UPPER [None]
  - DYSPNOEA [None]
  - DRUG INTOLERANCE [None]
  - PALPITATIONS [None]
  - FEELING ABNORMAL [None]
  - PYREXIA [None]
  - FEAR [None]
  - WHITE BLOOD CELL COUNT INCREASED [None]
